FAERS Safety Report 15402315 (Version 1)
Quarter: 2018Q3

REPORT INFORMATION
  Report Type: Spontaneous
  Country: US (occurrence: US)
  Receive Date: 20180919
  Receipt Date: 20180919
  Transmission Date: 20181010
  Serious: No
  Sender: FDA-Public Use
  Company Number: US-009507513-1809USA007408

PATIENT
  Sex: Female
  Weight: 61.22 kg

DRUGS (1)
  1. NEXPLANON [Suspect]
     Active Substance: ETONOGESTREL
     Indication: CONTRACEPTION
     Dosage: 1 IMPLANT, LEFT ARM, EVERY 3 TO 5 YEARS
     Route: 059
     Dates: start: 20170525

REACTIONS (3)
  - Circumstance or information capable of leading to medication error [Unknown]
  - Inappropriate schedule of drug administration [Unknown]
  - Implant site pain [Not Recovered/Not Resolved]
